FAERS Safety Report 11515923 (Version 1)
Quarter: 2015Q3

REPORT INFORMATION
  Report Type: Spontaneous
  Country: SE (occurrence: SE)
  Receive Date: 20150916
  Receipt Date: 20150916
  Transmission Date: 20151125
  Serious: Yes (Hospitalization, Other)
  Sender: FDA-Public Use
  Company Number: SE-BAXTER-2015BAX050268

PATIENT
  Sex: Male

DRUGS (9)
  1. VITALIPID INFANT [Suspect]
     Active Substance: ERGOCALCIFEROL\PHYTONADIONE\TOCOPHEROL\VITAMIN A PALMITATE
     Indication: HYPOPHAGIA
  2. VITALIPID INFANT [Suspect]
     Active Substance: ERGOCALCIFEROL\PHYTONADIONE\TOCOPHEROL\VITAMIN A PALMITATE
     Indication: ORAL MUCOSAL BLISTERING
     Route: 042
     Dates: start: 20150907, end: 20150907
  3. NUMETA G19E [Suspect]
     Active Substance: AMINO ACIDS\DEXTROSE\ELECTROLYTES NOS\SOYBEAN OIL
     Indication: HYPOPHAGIA
  4. NUMETA G19E [Suspect]
     Active Substance: AMINO ACIDS\DEXTROSE\ELECTROLYTES NOS\SOYBEAN OIL
     Indication: ORAL MUCOSAL BLISTERING
     Route: 042
     Dates: start: 20150907, end: 20150907
  5. SOLUVIT [Suspect]
     Active Substance: VITAMINS
     Indication: HYPOPHAGIA
  6. STERILT VATTEN BAXTER VIAFLO [Suspect]
     Active Substance: WATER
     Indication: MEDICATION DILUTION
     Route: 042
     Dates: start: 20150907, end: 20150907
  7. PEDITRACE [Suspect]
     Active Substance: CUPRIC CHLORIDE\MANGANESE CHLORIDE\POTASSIUM IODIDE\SODIUM FLUORIDE\SODIUM SELENITE\ZINC CHLORIDE
     Indication: ORAL MUCOSAL BLISTERING
     Route: 042
     Dates: start: 20150907, end: 20150907
  8. PEDITRACE [Suspect]
     Active Substance: CUPRIC CHLORIDE\MANGANESE CHLORIDE\POTASSIUM IODIDE\SODIUM FLUORIDE\SODIUM SELENITE\ZINC CHLORIDE
     Indication: HYPOPHAGIA
  9. SOLUVIT [Suspect]
     Active Substance: VITAMINS
     Indication: ORAL MUCOSAL BLISTERING
     Route: 042
     Dates: start: 20150907, end: 20150907

REACTIONS (7)
  - Hypersensitivity [Recovering/Resolving]
  - Documented hypersensitivity to administered product [Unknown]
  - Erythema [None]
  - Medication error [None]
  - Bradycardia [Not Recovered/Not Resolved]
  - Abdominal pain [None]
  - Vomiting [None]

NARRATIVE: CASE EVENT DATE: 20150907
